FAERS Safety Report 7967256-X (Version None)
Quarter: 2011Q4

REPORT INFORMATION
  Report Type: 
  Country: None (occurrence: None)
  Receive Date: 20111209
  Receipt Date: 20111203
  Transmission Date: 20120403
  Serious: Yes (Hospitalization)
  Sender: FDA-Public Use
  Company Number: US-BRISTOL-MYERS SQUIBB COMPANY-14460356

PATIENT
  Age: 69 Year
  Sex: Male

DRUGS (18)
  1. DIOVAN [Concomitant]
     Dates: start: 20050101
  2. LEXAPRO [Concomitant]
     Dates: start: 20081107
  3. PREDNISONE [Concomitant]
     Dates: start: 20090118
  4. PROTONIX [Concomitant]
  5. PROTONIX [Concomitant]
  6. FLUCONAZOLE [Concomitant]
     Dates: start: 20080203
  7. IPILIMUMAB [Suspect]
     Indication: MALIGNANT MELANOMA
     Dosage: INITIAL DOSE 16OCT08, ADMINISTERED ON 27NOV08; 4TH AND LAST DOSE 18-DEC08
     Route: 042
     Dates: start: 20081016, end: 20081218
  8. SIMVASTATIN [Concomitant]
     Dates: start: 20040101
  9. CASPOFUNGIN ACETATE [Concomitant]
  10. AMPHOTERICIN B [Concomitant]
  11. PREDNISONE [Concomitant]
     Dates: start: 20080203
  12. NEXIUM [Concomitant]
     Dates: start: 20080301
  13. OPIUM TINCTURE [Concomitant]
     Dates: start: 20090118
  14. ASTELIN [Concomitant]
  15. LEXAPRO [Concomitant]
  16. SIMVASTATIN [Concomitant]
     Dates: start: 20040101
  17. NEURONTIN [Concomitant]
     Dates: start: 20080821
  18. VALSARTAN [Concomitant]
     Dates: start: 20050101

REACTIONS (8)
  - NAUSEA [None]
  - COLITIS [None]
  - DIARRHOEA [None]
  - HYPOKALAEMIA [None]
  - HYPERTENSION [None]
  - PYREXIA [None]
  - GASTROINTESTINAL FUNGAL INFECTION [None]
  - VOMITING [None]
